FAERS Safety Report 13157262 (Version 2)
Quarter: 2017Q1

REPORT INFORMATION
  Report Type: Report from Study
  Country: US (occurrence: US)
  Receive Date: 20170127
  Receipt Date: 20170130
  Transmission Date: 20170428
  Serious: No
  Sender: FDA-Public Use
  Company Number: US-UCBSA-2017002198

PATIENT
  Sex: Male
  Weight: 67.57 kg

DRUGS (6)
  1. VITAMIN D3 [Concomitant]
     Active Substance: CHOLECALCIFEROL
     Indication: VITAMIN D DEFICIENCY
     Dosage: 400 UNITS, ONCE DAILY (QD)
     Route: 048
     Dates: start: 20150901
  2. 6-MP [Concomitant]
     Active Substance: MERCAPTOPURINE
     Indication: CROHN^S DISEASE
     Dosage: UNK
     Dates: start: 20121212, end: 20160104
  3. 6-MP [Concomitant]
     Active Substance: MERCAPTOPURINE
     Dosage: UNK
     Dates: start: 20160331
  4. CERTOLIZUMAB PEGOL CD [Suspect]
     Active Substance: CERTOLIZUMAB PEGOL
     Indication: CROHN^S DISEASE
     Dosage: 400 MG, UNK
     Dates: start: 20131206, end: 20170106
  5. MULTIVITAMIN [Concomitant]
     Active Substance: VITAMINS
     Indication: NUTRITIONAL SUPPLEMENTATION
     Dosage: 1 TABLET, ONCE DAILY (QD)
     Route: 048
     Dates: start: 20140811
  6. FOLIC ACID W/IRON/VITAMIN B12 [Concomitant]
     Indication: IRON DEFICIENCY
     Dosage: 1 TABLET, 2X/DAY (BID)
     Route: 048
     Dates: start: 20151019

REACTIONS (1)
  - Pregnancy of partner [Unknown]
